FAERS Safety Report 24668479 (Version 1)
Quarter: 2024Q4

REPORT INFORMATION
  Report Type: Spontaneous
  Country: DE (occurrence: DE)
  Receive Date: 20241127
  Receipt Date: 20241127
  Transmission Date: 20250114
  Serious: Yes (Other)
  Sender: SANDOZ
  Company Number: DE-SANDOZ-SDZ2024DE097729

PATIENT
  Sex: Female

DRUGS (1)
  1. TRIAMCINOLONE ACETONIDE [Suspect]
     Active Substance: TRIAMCINOLONE ACETONIDE
     Indication: Intervertebral disc protrusion
     Dosage: 40 MG
     Route: 065
     Dates: start: 201803, end: 201901

REACTIONS (4)
  - Diabetes mellitus [Unknown]
  - Lipid metabolism disorder [Unknown]
  - Blood cholesterol [Unknown]
  - Obesity [Unknown]

NARRATIVE: CASE EVENT DATE: 20191101
